FAERS Safety Report 5912221-7 (Version None)
Quarter: 2008Q4

REPORT INFORMATION
  Report Type: 
  Country: None (occurrence: None)
  Receive Date: 20081008
  Receipt Date: 20080930
  Transmission Date: 20090506
  Serious: Yes (Other)
  Sender: FDA-Public Use
  Company Number: SE-JNJFOC-20081000006

PATIENT
  Age: 65 Year
  Sex: Female

DRUGS (6)
  1. RISPERDAL [Suspect]
     Indication: PSYCHOTIC DISORDER
     Route: 048
  2. SEROQUEL [Concomitant]
     Route: 065
  3. ZOLOFT [Concomitant]
     Route: 065
  4. ABILIFY [Concomitant]
     Route: 065
  5. XANOR DEPOT [Concomitant]
     Route: 065
  6. AKINETIN [Concomitant]
     Route: 065

REACTIONS (1)
  - URINARY TRACT DISORDER [None]
